FAERS Safety Report 8580845-7 (Version None)
Quarter: 2012Q3

REPORT INFORMATION
  Report Type: 
  Country: None (occurrence: None)
  Receive Date: 20120726
  Receipt Date: 20120716
  Transmission Date: 20120928
  Serious: Yes (Hospitalization)
  Sender: FDA-Public Use
  Company Number: 1356099

PATIENT
  Age: 28 Year
  Sex: Female

DRUGS (1)
  1. CEFTRIAXONE SODIUM [Suspect]
     Indication: PRODUCT USED FOR UNKNOWN INDICATION
     Dosage: 4 G GRAM(S), INTRAVENOUS (NOT OTHERWISE SPECIFIED)

REACTIONS (6)
  - FLANK PAIN [None]
  - ANURIA [None]
  - PLEURAL EFFUSION [None]
  - ASCITES [None]
  - HYDRONEPHROSIS [None]
  - CALCULUS URETERIC [None]
